FAERS Safety Report 8177940-3 (Version None)
Quarter: 2012Q1

REPORT INFORMATION
  Report Type: 
  Country: None (occurrence: None)
  Receive Date: 20120130
  Receipt Date: 20110311
  Transmission Date: 20120608
  Serious: Yes (Other)
  Sender: FDA-Public Use
  Company Number: 029089

PATIENT
  Age: 59 Year
  Sex: Male

DRUGS (3)
  1. LEVETIRACETAM [Suspect]
     Indication: CONVULSION
     Dosage: (250 MG 1X/12 HOURS, ENTERALLY) ; (500 MG BID, VIA NASOGASTRIC TUBE)
  2. FOSPHENYTOIN [Suspect]
     Indication: CONVULSION
     Dosage: (1000 MG INTRAVENOUS (NOT OTHERWISE SPECIFIED))
     Route: 042
  3. PHENYTOIN [Suspect]
     Indication: CONVULSION
     Dosage: (100 MG 1X/8 HOURS INTRAVENOUS (NOT OTHERWISE SPECIFIED))
     Route: 042

REACTIONS (1)
  - CONVULSION [None]
